FAERS Safety Report 8173162-0 (Version None)
Quarter: 2012Q1

REPORT INFORMATION
  Report Type: 
  Country: None (occurrence: None)
  Receive Date: 20120229
  Receipt Date: 20110427
  Transmission Date: 20120608
  Serious: No
  Sender: FDA-Public Use
  Company Number: US-GLAXOSMITHKLINE-A0924755A

PATIENT
  Age: 65 Year
  Sex: Female

DRUGS (5)
  1. ANTI-CHOLESTEROL MEDICATION [Concomitant]
  2. BETA BLOCKER [Concomitant]
  3. IMITREX [Suspect]
     Indication: MIGRAINE
     Dosage: 6MG AS REQUIRED
     Route: 058
  4. ANTIDEPRESSANT [Concomitant]
  5. MUSCLE RELAXANT [Concomitant]

REACTIONS (2)
  - INJECTION SITE SWELLING [None]
  - PRODUCT QUALITY ISSUE [None]
